FAERS Safety Report 6035194-8 (Version None)
Quarter: 2009Q1

REPORT INFORMATION
  Report Type: 
  Country: None (occurrence: None)
  Receive Date: 20090109
  Receipt Date: 20081230
  Transmission Date: 20090719
  Serious: Yes (Other)
  Sender: FDA-Public Use
  Company Number: 2008AP003196

PATIENT
  Age: 44 Year
  Sex: Male

DRUGS (4)
  1. CITALOPRAM HYDROBROMIDE [Suspect]
     Dosage: 10 MG;TAB;PO;QD ; 30 MG;TAB;PO;QD
     Route: 048
     Dates: start: 20080826, end: 20081117
  2. CITALOPRAM HYDROBROMIDE [Suspect]
     Dosage: 10 MG;TAB;PO;QD ; 30 MG;TAB;PO;QD
     Route: 048
     Dates: start: 20081220
  3. NABILONE (NABILONE) [Concomitant]
  4. PAROXETINE HCL [Concomitant]

REACTIONS (3)
  - COAGULOPATHY [None]
  - LIP HAEMORRHAGE [None]
  - MOUTH INJURY [None]
